FAERS Safety Report 5770953-8 (Version None)
Quarter: 2008Q2

REPORT INFORMATION
  Report Type: 
  Country: None (occurrence: None)
  Receive Date: 20080613
  Receipt Date: 20080519
  Transmission Date: 20081010
  Serious: No
  Sender: FDA-Public Use
  Company Number: US-ABBOTT-08P-163-0452724-00

PATIENT
  Sex: Female
  Weight: 52.21 kg

DRUGS (9)
  1. HUMIRA [Suspect]
     Indication: CROHN'S DISEASE
     Route: 058
     Dates: start: 20080519, end: 20080519
  2. HUMIRA [Suspect]
     Route: 058
  3. HUMIRA [Suspect]
     Route: 058
  4. PREDNISONE TAB [Concomitant]
     Indication: CROHN'S DISEASE
     Route: 048
     Dates: start: 20000101
  5. FISH OIL [Concomitant]
     Indication: INFLAMMATION
     Route: 048
     Dates: start: 20080101
  6. MULTI-VITAMIN [Concomitant]
     Indication: MALABSORPTION
     Route: 048
     Dates: start: 20070101
  7. CALCIUM [Concomitant]
     Indication: MALABSORPTION
     Route: 048
  8. CALCIUM [Concomitant]
     Indication: STEROID THERAPY
  9. ALENDRONATE SODIUM [Concomitant]
     Indication: OSTEOPOROSIS
     Route: 048
     Dates: start: 20050101

REACTIONS (2)
  - ACCIDENTAL EXPOSURE [None]
  - INJECTION SITE PAIN [None]
